FAERS Safety Report 6134091-7 (Version None)
Quarter: 2009Q1

REPORT INFORMATION
  Report Type: 
  Country: None (occurrence: None)
  Receive Date: 20090326
  Receipt Date: 20090324
  Transmission Date: 20090719
  Serious: Yes (Death)
  Sender: FDA-Public Use
  Company Number: AU-ROXANE LABORATORIES, INC.-2009-RO-00293RO

PATIENT

DRUGS (1)
  1. METHADONE HCL [Suspect]

REACTIONS (1)
  - OVERDOSE [None]
